FAERS Safety Report 6709113-2 (Version None)
Quarter: 2010Q2

REPORT INFORMATION
  Report Type: 
  Country: None (occurrence: None)
  Receive Date: 20100429
  Receipt Date: 20100414
  Transmission Date: 20101027
  Serious: Yes (Life-Threatening, Hospitalization)
  Sender: FDA-Public Use
  Company Number: TCI2010A00883

PATIENT
  Age: 70 Year
  Sex: Female

DRUGS (10)
  1. LANSOPRAZOLE [Suspect]
     Indication: ULCER
     Dosage: 15 MG (15 MG, 1 IN 1 D) PER ORAL
     Route: 048
     Dates: start: 20061220, end: 20100302
  2. ENBREL [Suspect]
     Indication: RHEUMATOID ARTHRITIS
     Dosage: 25 MG (25 MG, 2 IN 1 WK) SUBCUTANEOUS
     Route: 058
     Dates: start: 20081125, end: 20100302
  3. LOXONIN (LOXOPROFEN SODIUM) [Suspect]
     Indication: RHEUMATOID ARTHRITIS
     Dosage: 180 MG (60 MG, 3 IN 1 D) PER ORAL
     Route: 048
     Dates: start: 20060201, end: 20100302
  4. ALFAROL (ALFACALCIDOL) [Suspect]
     Indication: OSTEOPOROSIS
     Dosage: 1 MG (1 MG, 1 IN 1 D) PER ORAL
     Route: 048
     Dates: start: 20061031, end: 20100204
  5. ASPARA-CA (ASPARTATE CALCIUM) [Suspect]
     Indication: OSTEOPOROSIS
     Dosage: 400 MG (400 MG, 1 IN 1 D) PER ORAL
     Route: 048
     Dates: start: 20061031, end: 20100302
  6. ALENDRONATE SODIUM [Suspect]
     Indication: OSTEOPOROSIS
     Dosage: 35 MG (35 MG, 1 IN 1 WK) PER ORAL
     Route: 048
     Dates: start: 20081125, end: 20100204
  7. PREDNISOLONE [Suspect]
     Indication: RHEUMATOID ARTHRITIS
     Dosage: 3 MG (3 MG, 1 IN 1 D) PER ORAL
     Route: 048
     Dates: end: 20100302
  8. PROGRAF [Suspect]
     Indication: RHEUMATOID ARTHRITIS
     Dosage: 2 MG (2 MG, 1 IN 1 D) PER ORAL
     Route: 048
     Dates: start: 20061220, end: 20090324
  9. PROGRAF [Suspect]
     Indication: RHEUMATOID ARTHRITIS
     Dosage: 2 MG (2 MG, 1 IN 1 D) PER ORAL
     Route: 048
     Dates: start: 20090507, end: 20090701
  10. RHEUMATREX [Suspect]
     Indication: RHEUMATOID ARTHRITIS
     Dosage: 4 MG (4 MG, 1 IN 1 WK) PER ORAL
     Route: 048
     Dates: start: 20090930, end: 20091028

REACTIONS (25)
  - ABNORMAL BEHAVIOUR [None]
  - ACUTE DISSEMINATED ENCEPHALOMYELITIS [None]
  - BLOOD PHOSPHORUS DECREASED [None]
  - BLOOD POTASSIUM DECREASED [None]
  - COSTOVERTEBRAL ANGLE TENDERNESS [None]
  - DECREASED APPETITE [None]
  - DEPRESSED LEVEL OF CONSCIOUSNESS [None]
  - DIZZINESS [None]
  - FEELING COLD [None]
  - GAIT DISTURBANCE [None]
  - HEARING IMPAIRED [None]
  - HYPOAESTHESIA [None]
  - HYPOPHAGIA [None]
  - LUMBAR SPINAL STENOSIS [None]
  - MALAISE [None]
  - MENINGITIS CRYPTOCOCCAL [None]
  - MENINGITIS TUBERCULOUS [None]
  - PLATELET COUNT DECREASED [None]
  - PROGRESSIVE MULTIFOCAL LEUKOENCEPHALOPATHY [None]
  - PYREXIA [None]
  - RENAL IMPAIRMENT [None]
  - SOMNOLENCE [None]
  - SPINAL OSTEOARTHRITIS [None]
  - TINNITUS [None]
  - URINARY RETENTION [None]
